FAERS Safety Report 24413030 (Version 2)
Quarter: 2025Q1

REPORT INFORMATION
  Report Type: Report from Study
  Country: US (occurrence: US)
  Receive Date: 20241008
  Receipt Date: 20250203
  Transmission Date: 20250408
  Serious: Yes (Other)
  Sender: BAYER HEALTHCARE PHARMACEUTICALS INC.
  Company Number: US-BAYER-2024A128343

PATIENT
  Age: 77 Year
  Sex: Male

DRUGS (4)
  1. NUBEQA [Suspect]
     Active Substance: DAROLUTAMIDE
     Indication: Prostate cancer
     Dosage: 600 MG, BID
     Route: 048
     Dates: start: 20240301
  2. NUBEQA [Suspect]
     Active Substance: DAROLUTAMIDE
     Indication: Prostate cancer
     Dosage: 600 MG, BID
     Route: 048
  3. NUBEQA [Suspect]
     Active Substance: DAROLUTAMIDE
     Indication: Prostate cancer
     Dosage: 600 MG, BID
     Route: 048
  4. FUROSEMIDE [Suspect]
     Active Substance: FUROSEMIDE
     Indication: Peripheral swelling

REACTIONS (14)
  - Poor peripheral circulation [None]
  - Dyspnoea [Unknown]
  - Peripheral swelling [Recovering/Resolving]
  - Hypoaesthesia [Unknown]
  - Oedema [Recovering/Resolving]
  - Skin discolouration [None]
  - Affective disorder [Unknown]
  - Weight decreased [Unknown]
  - Muscular weakness [Unknown]
  - Back disorder [Recovering/Resolving]
  - Peripheral vascular disorder [Unknown]
  - Fatigue [Unknown]
  - Pain in extremity [None]
  - Product dose omission issue [None]
